FAERS Safety Report 6417973-8 (Version None)
Quarter: 2009Q4

REPORT INFORMATION
  Report Type: 
  Country: None (occurrence: None)
  Receive Date: 20091028
  Receipt Date: 20091022
  Transmission Date: 20100525
  Serious: Yes (Other)
  Sender: FDA-Public Use
  Company Number: US-MERCK-0910USA02832

PATIENT
  Sex: Female

DRUGS (3)
  1. VYTORIN [Suspect]
     Route: 048
  2. SIMVASTATIN [Suspect]
     Route: 048
  3. PLAVIX [Suspect]
     Route: 065

REACTIONS (1)
  - RENAL FAILURE [None]
